FAERS Safety Report 11734784 (Version 2)
Quarter: 2019Q1

REPORT INFORMATION
  Report Type: Spontaneous
  Country: US (occurrence: US)
  Receive Date: 20151113
  Receipt Date: 20190218
  Transmission Date: 20190417
  Serious: No
  Sender: FDA-Public Use
  Company Number: US-PFIZER INC-2015378181

PATIENT
  Age: 63 Year
  Sex: Female
  Weight: 69 kg

DRUGS (8)
  1. COLACE [Concomitant]
     Active Substance: DOCUSATE SODIUM
     Dosage: 100 MG, 2X/DAY
     Route: 048
  2. FERROUS SULFATE. [Concomitant]
     Active Substance: FERROUS SULFATE
     Dosage: 325 MG, 2X/DAY (65 MG ELEMENTAL IRON)
     Route: 048
  3. ECONAZOLE NITRATE. [Suspect]
     Active Substance: ECONAZOLE NITRATE
     Dosage: 1 %, UNK
     Route: 061
  4. NORCO [Concomitant]
     Active Substance: ACETAMINOPHEN\HYDROCODONE BITARTRATE
     Dosage: HYDROCODONE BITARTRATE 7.5 MG/ PARACETAMOL 325 MG, 1 TAB 4 TIMES DAILY
     Route: 048
  5. NIFEDIPINE. [Concomitant]
     Active Substance: NIFEDIPINE
     Dosage: 30 MG, 1X/DAY
  6. NORCO [Concomitant]
     Active Substance: ACETAMINOPHEN\HYDROCODONE BITARTRATE
     Dosage: HYDROCODONE BITARTRATE 7.5 MG/ PARACETAMOL 325 MG, 1 TAB 3 TIMES A DAY AS NEEDED
     Route: 048
  7. REVATIO [Suspect]
     Active Substance: SILDENAFIL CITRATE
     Indication: SCLERODERMA
     Dosage: 20 MG, 3X/DAY
     Route: 048
  8. NORCO [Concomitant]
     Active Substance: ACETAMINOPHEN\HYDROCODONE BITARTRATE
     Indication: PAIN
     Dosage: HYDROCODONE BITARTRATE 7.5 MG/ PARACETAMOL 325 MG, 1-2 TAB(S), EVERY 4 HOURS
     Route: 048

REACTIONS (3)
  - Product use in unapproved indication [Unknown]
  - Contraindicated product administered [Unknown]
  - Drug hypersensitivity [Unknown]
